FAERS Safety Report 6265508-5 (Version None)
Quarter: 2009Q3

REPORT INFORMATION
  Report Type: 
  Country: None (occurrence: None)
  Receive Date: 20090709
  Receipt Date: 20090709
  Transmission Date: 20100115
  Serious: Yes (Other)
  Sender: FDA-Public Use
  Company Number: None

PATIENT
  Age: 9 Year
  Sex: Male
  Weight: 25.855 kg

DRUGS (1)
  1. TAMIFLU [Suspect]
     Indication: INFLUENZA
     Dosage: ONE CAPSULE 2X A DAY, 10 DAYS
     Dates: start: 20090706, end: 20090707

REACTIONS (5)
  - FEAR [None]
  - HALLUCINATION [None]
  - HYPERHIDROSIS [None]
  - MOOD ALTERED [None]
  - TREMOR [None]
